FAERS Safety Report 11573328 (Version 2)
Quarter: 2015Q4

REPORT INFORMATION
  Report Type: Spontaneous
  Country: US (occurrence: US)
  Receive Date: 20150916
  Receipt Date: 20151027
  Transmission Date: 20160304
  Serious: No
  Sender: FDA-Public Use
  Company Number: US-ELI_LILLY_AND_COMPANY-US200910007596

PATIENT
  Sex: Female

DRUGS (4)
  1. CALCIUM [Concomitant]
     Active Substance: CALCIUM
  2. VITAMINS [Concomitant]
     Active Substance: VITAMINS
  3. FORTEO [Suspect]
     Active Substance: TERIPARATIDE
     Indication: OSTEOPOROSIS
  4. FORTEO [Suspect]
     Active Substance: TERIPARATIDE
     Dosage: 20 UG, DAILY (1/D)
     Dates: end: 20100714

REACTIONS (14)
  - Feeling abnormal [Unknown]
  - Gait disturbance [Unknown]
  - Flatulence [Unknown]
  - Headache [Unknown]
  - Weight decreased [Unknown]
  - Pain [Unknown]
  - Bone disorder [Unknown]
  - Pruritus generalised [Unknown]
  - Nausea [Unknown]
  - Muscular weakness [Unknown]
  - Dyspepsia [Unknown]
  - Pain in extremity [Unknown]
  - Joint swelling [Unknown]
  - Eating disorder [Unknown]
